FAERS Safety Report 8814389 (Version 1)
Quarter: 2012Q4

REPORT INFORMATION
  Report Type: 
  Country: BR (occurrence: BR)
  Receive Date: 20120928
  Receipt Date: 20120928
  Transmission Date: 20130627
  Serious: Yes (Other)
  Sender: FDA-Public Use
  Company Number: BR-PFIZER INC-2012237847

PATIENT
  Age: 54 Year
  Sex: Female

DRUGS (11)
  1. FRONTAL [Suspect]
     Indication: DEPRESSION
     Dosage: UNK
  2. FRONTAL [Suspect]
     Indication: FIBROMYALGIA
  3. FRONTAL [Suspect]
     Indication: HYPERTENSION
  4. FRONTAL XR [Suspect]
     Indication: DEPRESSION
     Dosage: UNK
  5. FRONTAL XR [Suspect]
     Indication: FIBROMYALGIA
  6. FRONTAL XR [Suspect]
     Indication: HYPERTENSION
  7. EUTIROX [Concomitant]
     Dosage: UNK
  8. FLUXENE [Concomitant]
     Dosage: UNK
  9. MODURETIC [Concomitant]
     Dosage: UNK
  10. PAMELOR [Concomitant]
     Dosage: UNK
  11. PANTOPRAZOLE [Concomitant]
     Indication: ABDOMINAL PAIN UPPER
     Dosage: UNK

REACTIONS (4)
  - Drug level decreased [Unknown]
  - Drug withdrawal syndrome [Unknown]
  - Dizziness [Unknown]
  - Off label use [Unknown]
